FAERS Safety Report 5074371-X (Version None)
Quarter: 2006Q3

REPORT INFORMATION
  Report Type: 
  Country: None (occurrence: None)
  Receive Date: 20060803
  Receipt Date: 20060720
  Transmission Date: 20061208
  Serious: Yes (Hospitalization)
  Sender: FDA-Public Use
  Company Number: 230442K06CAN

PATIENT
  Sex: Female
  Weight: 74.84 kg

DRUGS (6)
  1. REBIF [Suspect]
     Indication: MULTIPLE SCLEROSIS
     Dosage: 22 MCG, 3 IN 1 WEEKS, SUBCUTANEOUS
     Route: 058
     Dates: start: 20010302
  2. REBIF [Suspect]
     Indication: RELAPSING-REMITTING MULTIPLE SCLEROSIS
     Dosage: 22 MCG, 3 IN 1 WEEKS, SUBCUTANEOUS
     Route: 058
     Dates: start: 20010302
  3. OXYBUTYNIN [Concomitant]
  4. TELMISARTAN [Concomitant]
  5. FUROSEMIDE [Concomitant]
  6. BACLOFEN [Concomitant]

REACTIONS (5)
  - CYSTITIS BACTERIAL [None]
  - INCONTINENCE [None]
  - KIDNEY INFECTION [None]
  - NEUROGENIC BLADDER [None]
  - URINARY TRACT INFECTION [None]
